FAERS Safety Report 4500275-4 (Version None)
Quarter: 2004Q4

REPORT INFORMATION
  Report Type: 
  Country: None (occurrence: None)
  Receive Date: 20041112
  Receipt Date: 20041102
  Transmission Date: 20050328
  Serious: Yes (Hospitalization, Other)
  Sender: FDA-Public Use
  Company Number: US-MERCK-0411USA00373

PATIENT
  Age: 78 Year
  Sex: Male

DRUGS (3)
  1. ZOCOR [Suspect]
     Route: 048
     Dates: end: 20020101
  2. ZOCOR [Suspect]
     Route: 048
     Dates: end: 20021113
  3. ZOCOR [Suspect]
     Route: 048

REACTIONS (34)
  - ANEURYSM [None]
  - ANGINA PECTORIS [None]
  - BENIGN COLONIC POLYP [None]
  - BENIGN PROSTATIC HYPERPLASIA [None]
  - BRONCHITIS [None]
  - BURSITIS [None]
  - CARDIAC FAILURE CONGESTIVE [None]
  - CATARACT [None]
  - CORONARY ARTERY DISEASE [None]
  - CYST [None]
  - DIABETES MELLITUS NON-INSULIN-DEPENDENT [None]
  - DIVERTICULITIS [None]
  - DIVERTICULUM [None]
  - FALL [None]
  - FUNGAL RASH [None]
  - GASTROINTESTINAL HAEMORRHAGE [None]
  - GOUT [None]
  - HAEMORRHOIDS [None]
  - HEPATITIS C [None]
  - ILIAC ARTERY STENOSIS [None]
  - IRON DEFICIENCY ANAEMIA [None]
  - LOCALISED OSTEOARTHRITIS [None]
  - MEDICATION ERROR [None]
  - MEIBOMIANITIS [None]
  - MYOSITIS [None]
  - OSTEOARTHRITIS [None]
  - PERIPHERAL ARTERY ANEURYSM [None]
  - PERIPHERAL VASCULAR DISORDER [None]
  - PNEUMONIA [None]
  - RENAL CYST [None]
  - RHABDOMYOLYSIS [None]
  - ROTATOR CUFF SYNDROME [None]
  - SACROILIITIS [None]
  - SKIN LACERATION [None]
